FAERS Safety Report 22394062 (Version 1)
Quarter: 2023Q2

REPORT INFORMATION
  Report Type: Spontaneous
  Country: US (occurrence: US)
  Receive Date: 20230601
  Receipt Date: 20230601
  Transmission Date: 20230721
  Serious: No
  Sender: FDA-Public Use
  Company Number: US-APIL-2312565US

PATIENT
  Age: 68 Year
  Sex: Female
  Weight: 117.9 kg

DRUGS (6)
  1. PRED FORTE [Suspect]
     Active Substance: PREDNISOLONE ACETATE
     Indication: Postoperative care
     Dosage: ONE DROP ON RIGHT EYE
     Route: 047
     Dates: start: 20230419
  2. METOPROLOL [Concomitant]
     Active Substance: METOPROLOL
     Indication: Hypertension
  3. LASIX [Concomitant]
     Active Substance: FUROSEMIDE
     Indication: Hypertension
  4. SPIRONOLACTONE [Concomitant]
     Active Substance: SPIRONOLACTONE
     Indication: Hypertension
  5. XANAX [Concomitant]
     Active Substance: ALPRAZOLAM
     Indication: Anxiety
  6. XANAX [Concomitant]
     Active Substance: ALPRAZOLAM
     Indication: Panic attack

REACTIONS (4)
  - Erythema [Recovered/Resolved]
  - Skin warm [Not Recovered/Not Resolved]
  - Hot flush [Unknown]
  - Vision blurred [Unknown]

NARRATIVE: CASE EVENT DATE: 20230420
